FAERS Safety Report 6043680-X (Version None)
Quarter: 2009Q1

REPORT INFORMATION
  Report Type: 
  Country: None (occurrence: None)
  Receive Date: 20090115
  Receipt Date: 20090115
  Transmission Date: 20090719
  Serious: Yes (Life-Threatening, Hospitalization)
  Sender: FDA-Public Use
  Company Number: None

PATIENT
  Age: 36 Year
  Sex: Female
  Weight: 71.6683 kg

DRUGS (2)
  1. NUVARING [Suspect]
     Indication: CONTRACEPTION
     Dosage: 0.120MG/0.015 MG DELIVERED PER DAY VAG
     Route: 067
  2. NUVARING [Suspect]
     Indication: OVARIAN CYST
     Dosage: 0.120MG/0.015 MG DELIVERED PER DAY VAG
     Route: 067

REACTIONS (5)
  - CHEST PAIN [None]
  - DYSPNOEA [None]
  - PAIN [None]
  - PLEURAL EFFUSION [None]
  - PULMONARY EMBOLISM [None]
